FAERS Safety Report 8002781 (Version 7)
Quarter: 2012Q4

REPORT INFORMATION
  Report Type: 
  Country: JP (occurrence: JP)
  Receive Date: 20110622
  Receipt Date: 20121214
  Transmission Date: 20130627
  Serious: Yes (Hospitalization, Disabling, Other)
  Sender: FDA-Public Use
  Company Number: PHHY2011JP52333

PATIENT
  Age: 39 Year
  Sex: Male

DRUGS (34)
  1. CLOZAPINE [Suspect]
     Indication: SCHIZOPHRENIA
     Dosage: 12.5 mg,
     Route: 048
     Dates: start: 20110517, end: 20110517
  2. CLOZAPINE [Suspect]
     Dosage: 25 mg,
     Route: 048
     Dates: start: 20110518, end: 20110518
  3. CLOZAPINE [Suspect]
     Dosage: 50 mg,
     Route: 048
     Dates: start: 20110519, end: 20110523
  4. CLOZAPINE [Suspect]
     Dosage: 100 mg,
     Route: 048
     Dates: start: 20110524, end: 20110525
  5. CLOZAPINE [Suspect]
     Dosage: 125 mg,
     Route: 048
     Dates: start: 20110526, end: 20110608
  6. CLOZAPINE [Suspect]
     Dosage: 150 mg,
     Route: 048
     Dates: start: 20110609, end: 20110609
  7. CLOZAPINE [Suspect]
     Dosage: 175 mg,
     Route: 048
     Dates: start: 20110610, end: 20110610
  8. CLOZAPINE [Suspect]
     Dosage: 200 mg,
     Route: 048
     Dates: start: 20110611, end: 20110615
  9. CLOZAPINE [Suspect]
     Dosage: 100 mg,
     Route: 048
     Dates: start: 20110616, end: 20110616
  10. PURSENNID [Concomitant]
     Dosage: 12 mg, UNK
     Route: 048
     Dates: start: 20110802
  11. RISPERIDONE [Concomitant]
     Dosage: 12 mg, UNK
     Dates: start: 20110517
  12. RISPERIDONE [Concomitant]
     Dosage: 6 mg, UNK
  13. RISPERIDONE [Concomitant]
     Dates: end: 20110607
  14. ZYPREXA [Concomitant]
     Dosage: 20 mg, UNK
     Dates: start: 20110517
  15. ZYPREXA [Concomitant]
     Dosage: 10 mg, UNK
  16. ZYPREXA [Concomitant]
     Dosage: 20 mg, UNK
     Dates: end: 20110619
  17. BLONANSERIN [Concomitant]
     Dosage: 8 mg, UNK
     Route: 048
     Dates: start: 20110517
  18. BLONANSERIN [Concomitant]
     Dosage: 4 mg, UNK
     Dates: end: 20110525
  19. RISPERDAL [Concomitant]
     Dosage: 12 mg, UNK
     Route: 048
     Dates: start: 20110616
  20. SEROQUEL [Concomitant]
     Dosage: 400 mg, UNK
     Route: 048
     Dates: start: 20110712
  21. SEROQUEL [Concomitant]
     Dosage: 600 mg, UNK
     Route: 048
  22. SEROQUEL [Concomitant]
     Dosage: 750 mg, UNK
     Route: 048
  23. LULLAN [Concomitant]
     Dosage: 48 mg, UNK
     Dates: start: 20110726
  24. BARNETIL [Concomitant]
     Dosage: 900 mg, UNK
     Dates: start: 20110815
  25. AKINETON [Concomitant]
     Dosage: 2 mg, UNK
     Dates: start: 20110517
  26. AKINETON [Concomitant]
     Dosage: 3 mg, UNK
  27. AKINETON [Concomitant]
     Dosage: 6 mg, UNK
  28. AKINETON [Concomitant]
     Dosage: 4 mg, UNK
  29. AKINETON [Concomitant]
     Dosage: 3 mg, UNK
  30. MUCOSOLVAN [Concomitant]
     Dosage: 45 mg, UNK
     Dates: start: 20110604, end: 20110607
  31. FLOMOX [Concomitant]
     Dosage: 300 mg, UNK
     Dates: start: 20110604, end: 20110613
  32. MAGLAX [Concomitant]
     Dosage: 1 g, UNK
     Dates: start: 20110731
  33. MAGLAX [Concomitant]
     Dosage: 2 g, UNK
  34. URSO [Concomitant]

REACTIONS (8)
  - Blood lactate dehydrogenase increased [Unknown]
  - Eosinophil count increased [Recovered/Resolved]
  - Lymphocyte count decreased [Recovered/Resolved]
  - Hepatic function abnormal [Recovered/Resolved]
  - Alanine aminotransferase increased [Recovered/Resolved]
  - Aspartate aminotransferase increased [Recovered/Resolved]
  - Gamma-glutamyltransferase increased [Recovered/Resolved]
  - Psychotic disorder [Recovered/Resolved]
